FAERS Safety Report 9782601 (Version 1)
Quarter: 2013Q4

REPORT INFORMATION
  Report Type: Spontaneous
  Country: GB (occurrence: GB)
  Receive Date: 20131226
  Receipt Date: 20131226
  Transmission Date: 20140711
  Serious: Yes (Other)
  Sender: FDA-Public Use
  Company Number: GB-TEVA-451445ISR

PATIENT
  Age: 67 Year
  Sex: Female
  Weight: 59.41 kg

DRUGS (1)
  1. AMITRIPTYLINE [Suspect]
     Indication: BACK PAIN
     Dosage: AT NIGHT.
     Route: 048
     Dates: start: 19900205, end: 20120112

REACTIONS (5)
  - Cough [Recovered/Resolved]
  - Retching [Recovered/Resolved]
  - Lacrimation increased [Recovered/Resolved]
  - Rhinorrhoea [Recovered/Resolved]
  - Mucosal inflammation [Unknown]
